FAERS Safety Report 8381198-X (Version None)
Quarter: 2012Q2

REPORT INFORMATION
  Report Type: 
  Country: None (occurrence: None)
  Receive Date: 20120522
  Receipt Date: 20120507
  Transmission Date: 20120825
  Serious: Yes (Other)
  Sender: FDA-Public Use
  Company Number: FK201201349

PATIENT

DRUGS (5)
  1. CEREBROLYSIN (CEREBROLYSIN) (CEREBROLYSIN) [Suspect]
     Indication: PRODUCT USED FOR UNKNOWN INDICATION
     Dosage: 1076MG/5ML
  2. CEREBROLYSIN (FAMOTIDINE) [Concomitant]
  3. NICERGOLIN (NICERGOLINE) [Concomitant]
  4. SODIUM CHLORIDE 0.9% [Suspect]
     Indication: PRODUCT USED FOR UNKNOWN INDICATION
  5. BETAHISTINUM (BETAHISTINE) [Concomitant]

REACTIONS (3)
  - NAUSEA [None]
  - PYREXIA [None]
  - VOMITING [None]
